FAERS Safety Report 7982302-5 (Version None)
Quarter: 2011Q4

REPORT INFORMATION
  Report Type: 
  Country: None (occurrence: None)
  Receive Date: 20111215
  Receipt Date: 20111202
  Transmission Date: 20120403
  Serious: Yes (Other)
  Sender: FDA-Public Use
  Company Number: PHHY2011JP106565

PATIENT
  Age: 7 Year
  Sex: Female

DRUGS (6)
  1. METHYLPREDNISOLONE [Concomitant]
     Dosage: UNK UKN, UNK
  2. CYCLOSPORINE [Suspect]
     Indication: RENAL TRANSPLANT
     Dosage: UNK UKN, UNK
  3. PREDNISONE [Concomitant]
     Dosage: UNK UKN, UNK
  4. MYCOPHENOLATE MOFETIL [Concomitant]
     Dosage: UNK UKN, UNK
  5. RITUXIMAB [Concomitant]
     Dosage: 375 MG/M2, UNK
  6. BASILIXIMAB [Suspect]
     Indication: RENAL TRANSPLANT

REACTIONS (8)
  - NEPHROPATHY TOXIC [None]
  - RENAL IMPAIRMENT [None]
  - KIDNEY TRANSPLANT REJECTION [None]
  - EPSTEIN-BARR VIRUS INFECTION [None]
  - CYTOMEGALOVIRUS INFECTION [None]
  - PROTEINURIA [None]
  - TOXICITY TO VARIOUS AGENTS [None]
  - FOCAL SEGMENTAL GLOMERULOSCLEROSIS [None]
